FAERS Safety Report 5908896-9 (Version None)
Quarter: 2008Q4

REPORT INFORMATION
  Report Type: 
  Country: None (occurrence: None)
  Receive Date: 20081001
  Receipt Date: 20080919
  Transmission Date: 20090506
  Serious: Yes (Hospitalization)
  Sender: FDA-Public Use
  Company Number: 2008-184047-NL

PATIENT
  Age: 28 Year
  Sex: Female
  Weight: 84.4 kg

DRUGS (1)
  1. IMPLANON [Suspect]
     Indication: CONTRACEPTION
     Dosage: SUBDERMAL
     Route: 059
     Dates: start: 20071213

REACTIONS (2)
  - PNEUMONIA [None]
  - PULMONARY EMBOLISM [None]
